FAERS Safety Report 4652277-5 (Version None)
Quarter: 2005Q2

REPORT INFORMATION
  Report Type: 
  Country: None (occurrence: None)
  Receive Date: 20050502
  Receipt Date: 20050418
  Transmission Date: 20051028
  Serious: Yes (Other)
  Sender: FDA-Public Use
  Company Number: 2005-00772

PATIENT
  Age: 40 Year
  Sex: Male
  Weight: 95.2 kg

DRUGS (2)
  1. LORAZEPAM [Suspect]
     Indication: ANXIETY
     Dosage: SEE IMAGE
     Route: 048
     Dates: start: 20040822, end: 20040828
  2. LORAZEPAM [Suspect]
     Indication: ANXIETY
     Dosage: SEE IMAGE
     Route: 048
     Dates: start: 20040829, end: 20040829

REACTIONS (7)
  - ABNORMAL BEHAVIOUR [None]
  - AGITATION [None]
  - DELIRIUM [None]
  - DRUG INEFFECTIVE [None]
  - HYPERSENSITIVITY [None]
  - PARANOIA [None]
  - PSYCHOTIC DISORDER [None]
